FAERS Safety Report 7488749-8 (Version None)
Quarter: 2011Q2

REPORT INFORMATION
  Report Type: 
  Country: None (occurrence: None)
  Receive Date: 20110518
  Receipt Date: 20110506
  Transmission Date: 20111010
  Serious: Yes (Hospitalization, Other)
  Sender: FDA-Public Use
  Company Number: JP-CELGENEUS-087-21880-11030999

PATIENT
  Sex: Female

DRUGS (16)
  1. REVLIMID [Suspect]
     Indication: MULTIPLE MYELOMA
     Dosage: 25 MILLIGRAM
     Route: 048
     Dates: start: 20110221, end: 20110313
  2. MUCOSTA [Concomitant]
     Indication: PROPHYLAXIS
     Dosage: 300 MILLIGRAM
     Route: 048
     Dates: start: 20110221
  3. TRYPTANOL [Concomitant]
     Dosage: 10 MILLIGRAM
     Route: 048
     Dates: start: 20110221
  4. MAGMITT [Concomitant]
     Indication: CONSTIPATION
     Dosage: 90 MILLIGRAM
     Route: 048
     Dates: start: 20110221
  5. LYRICA [Concomitant]
     Dosage: 225 MILLIGRAM
     Route: 048
     Dates: start: 20110221
  6. DEXAMETHASONE [Suspect]
     Dosage: 20 MILLIGRAM
     Route: 048
     Dates: start: 20110314, end: 20110314
  7. ASPIRIN [Concomitant]
     Indication: PROPHYLAXIS
     Dosage: 100 MILLIGRAM
     Route: 048
     Dates: start: 20110221
  8. OXYCONTIN [Concomitant]
     Dosage: 40 MILLIGRAM
     Route: 048
     Dates: start: 20110221
  9. CEFAZOLIN SODIUM [Concomitant]
     Indication: CONSTIPATION
     Dosage: 3 TABLET
     Route: 048
     Dates: start: 20110221
  10. PURSENNID [Concomitant]
     Indication: CONSTIPATION
     Dosage: 24 MILLIGRAM
     Route: 048
     Dates: start: 20110221
  11. FAMOTIDINE [Concomitant]
     Indication: PROPHYLAXIS
     Dosage: 20 MILLIGRAM
     Route: 048
     Dates: start: 20110221
  12. LOXONIN [Concomitant]
     Dosage: 180 MILLIGRAM
     Route: 048
     Dates: start: 20110221
  13. DEXAMETHASONE [Suspect]
     Indication: MULTIPLE MYELOMA
     Dosage: 20 MILLIGRAM
     Route: 048
     Dates: start: 20110221, end: 20110221
  14. DEXAMETHASONE [Suspect]
     Dosage: 20 MILLIGRAM
     Route: 048
     Dates: start: 20110228, end: 20110228
  15. VALTREX [Concomitant]
     Indication: PROPHYLAXIS
     Dosage: 500 MILLIGRAM
     Route: 048
     Dates: start: 20110221
  16. DEXAMETHASONE [Suspect]
     Dosage: 20 MILLIGRAM
     Route: 048
     Dates: start: 20110307, end: 20110307

REACTIONS (3)
  - SOMNOLENCE [None]
  - MULTIPLE MYELOMA [None]
  - DYSPHONIA [None]
